FAERS Safety Report 4643131-3 (Version None)
Quarter: 2005Q2

REPORT INFORMATION
  Report Type: 
  Country: None (occurrence: None)
  Receive Date: 20050422
  Receipt Date: 20050420
  Transmission Date: 20051028
  Serious: Yes (Disabling)
  Sender: FDA-Public Use
  Company Number: US-MERCK-0504USA03657

PATIENT
  Age: 88 Year
  Sex: Female

DRUGS (2)
  1. FOSAMAX [Suspect]
     Indication: OSTEOPOROSIS
     Route: 048
  2. AMITRIPTYLINE HYDROCHLORIDE [Concomitant]
     Route: 065

REACTIONS (3)
  - DRUG INEFFECTIVE [None]
  - FRACTURE [None]
  - SPINAL FRACTURE [None]
